FAERS Safety Report 25411201 (Version 2)
Quarter: 2025Q2

REPORT INFORMATION
  Report Type: Report from Study
  Country: CA (occurrence: CA)
  Receive Date: 20250609
  Receipt Date: 20250611
  Transmission Date: 20250716
  Serious: Yes (Other)
  Sender: NOVARTIS
  Company Number: CA-002147023-NVSC2025CA047477

PATIENT
  Age: 54 Year
  Sex: Female

DRUGS (2)
  1. KISQALI [Suspect]
     Active Substance: RIBOCICLIB SUCCINATE
     Indication: Breast cancer metastatic
     Dosage: 600 MG, QD
     Route: 048
     Dates: start: 20250219
  2. KISQALI [Suspect]
     Active Substance: RIBOCICLIB SUCCINATE
     Dosage: 600 MG, QD
     Route: 048
     Dates: start: 20250325

REACTIONS (16)
  - Neuropathy peripheral [Recovered/Resolved]
  - Burning sensation [Recovered/Resolved]
  - Neutrophil count decreased [Recovering/Resolving]
  - Rash [Recovered/Resolved]
  - Rash pruritic [Recovered/Resolved]
  - Fatigue [Unknown]
  - Headache [Unknown]
  - Tongue ulceration [Recovering/Resolving]
  - Cheilitis [Recovering/Resolving]
  - Rash erythematous [Recovered/Resolved]
  - Rash [Recovered/Resolved]
  - Sunburn [Recovered/Resolved]
  - Sensitive skin [Recovered/Resolved]
  - Insomnia [Not Recovered/Not Resolved]
  - Nausea [Unknown]
  - Alopecia [Unknown]

NARRATIVE: CASE EVENT DATE: 20250201
